FAERS Safety Report 8454842-6 (Version None)
Quarter: 2012Q2

REPORT INFORMATION
  Report Type: 
  Country: None (occurrence: None)
  Receive Date: 20120621
  Receipt Date: 20120619
  Transmission Date: 20120825
  Serious: Yes (Death)
  Sender: FDA-Public Use
  Company Number: US-CELGENEUS-163-21880-12052417

PATIENT
  Sex: Male

DRUGS (12)
  1. VALTREX [Concomitant]
     Dosage: 500 MILLIGRAM
     Route: 048
     Dates: start: 20110901
  2. COLACE [Concomitant]
     Dosage: 100 MILLIGRAM
     Route: 048
  3. REVLIMID [Suspect]
     Dosage: 25 MILLIGRAM
     Route: 048
     Dates: start: 20120317, end: 20120101
  4. PERCOCET [Concomitant]
     Indication: PAIN
     Dosage: 1-2
     Route: 048
     Dates: start: 20120101
  5. LYRICA [Concomitant]
     Dosage: 100 MILLIGRAM
     Route: 048
     Dates: start: 20120101
  6. VITAMIN B-12 [Concomitant]
     Dosage: 1000
     Route: 048
  7. VITAMIN D [Concomitant]
     Dosage: 1000 UNIT
     Route: 048
  8. PEPCID AC [Concomitant]
     Dosage: 20 MILLIGRAM
     Route: 048
  9. VELCADE [Concomitant]
     Dosage: 1.3 MILLIGRAM/SQ. METER
     Route: 065
     Dates: start: 20120401
  10. BACTRIM [Concomitant]
     Dosage: 1
     Route: 048
     Dates: start: 20110901
  11. ASPIRIN [Concomitant]
     Indication: PROPHYLAXIS
     Dosage: 81 MILLIGRAM
     Route: 048
     Dates: start: 20120301
  12. HYDROMORPHONE HCL [Concomitant]
     Dosage: 2 MILLIGRAM
     Route: 048

REACTIONS (2)
  - PNEUMONIA [None]
  - MULTIPLE MYELOMA [None]
